FAERS Safety Report 9812366 (Version 1)
Quarter: 2014Q1

REPORT INFORMATION
  Report Type: Report from Study
  Country: US (occurrence: US)
  Receive Date: 20140113
  Receipt Date: 20140113
  Transmission Date: 20141002
  Serious: Yes (Other)
  Sender: FDA-Public Use
  Company Number: US-ROCHE-1332092

PATIENT
  Sex: 0

DRUGS (4)
  1. RITUXIMAB [Suspect]
     Indication: CHRONIC LYMPHOCYTIC LEUKAEMIA
     Dosage: THE FIRST DOSE
     Route: 042
  2. RITUXIMAB [Suspect]
     Route: 042
  3. TRU-016 [Suspect]
     Indication: CHRONIC LYMPHOCYTIC LEUKAEMIA
     Route: 042
  4. TRU-016 (ANTI-CD37 MAB) [Suspect]
     Route: 042

REACTIONS (6)
  - Systemic inflammatory response syndrome [Unknown]
  - Deep vein thrombosis [Unknown]
  - Neutropenia [Unknown]
  - Pneumonia [Unknown]
  - Sinusitis [Unknown]
  - Pyrexia [Unknown]
